FAERS Safety Report 9543811 (Version 1)
Quarter: 2013Q2

REPORT INFORMATION
  Report Type: Spontaneous
  Country: US (occurrence: None)
  Receive Date: 20130524
  Receipt Date: 20130524
  Transmission Date: 20140414
  Serious: Yes (Other)
  Sender: FDA-Public Use
  Company Number: PHEH2011US013267

PATIENT
  Age: 59 Year
  Sex: Male

DRUGS (10)
  1. GILENYA (FINGOLIMOD) CAPSULE, 0.5MG [Suspect]
     Indication: MULTIPLE SCLEROSIS
     Route: 048
     Dates: start: 20111025, end: 201111
  2. AGGRENOX (ACETYLSALICYLIC ACID, DIPYRIDAMOLE) [Concomitant]
  3. ALLOPURINOL [Concomitant]
  4. BUSPIRONE [Concomitant]
  5. GABAPENTIN [Concomitant]
  6. CYMBALTA (DULOXETINE HYDROCHLORIDE) [Concomitant]
  7. VESICARE (SOLIFENACIN SUCCINATE) [Concomitant]
  8. BACLOFEN [Concomitant]
  9. PLAVIX (CLOPIDOGREL BISULFATE) [Concomitant]
  10. LOVASTATIN [Concomitant]

REACTIONS (3)
  - Pneumonia [None]
  - Candida infection [None]
  - Upper respiratory tract infection [None]
